FAERS Safety Report 6737870-8 (Version None)
Quarter: 2010Q2

REPORT INFORMATION
  Report Type: 
  Country: None (occurrence: None)
  Receive Date: 20100524
  Receipt Date: 20100519
  Transmission Date: 20101027
  Serious: Yes (Other)
  Sender: FDA-Public Use
  Company Number: US-BRISTOL-MYERS SQUIBB COMPANY-15112857

PATIENT
  Sex: Female

DRUGS (2)
  1. ABILIFY [Suspect]
  2. CELEXA [Suspect]

REACTIONS (3)
  - DIZZINESS [None]
  - HALLUCINATION, AUDITORY [None]
  - VISION BLURRED [None]
